FAERS Safety Report 12428548 (Version 1)
Quarter: 2016Q2

REPORT INFORMATION
  Report Type: Spontaneous
  Country: US (occurrence: None)
  Receive Date: 20160601
  Receipt Date: 20160601
  Transmission Date: 20160815
  Serious: No
  Sender: FDA-Public Use
  Company Number: None

PATIENT
  Age: 40 Year
  Sex: Female
  Weight: 61.24 kg

DRUGS (1)
  1. MIRENA [Suspect]
     Active Substance: LEVONORGESTREL
     Indication: CONTRACEPTION
     Dates: start: 20160414

REACTIONS (5)
  - Weight increased [None]
  - Alopecia [None]
  - Lethargy [None]
  - Blood thyroid stimulating hormone increased [None]
  - Drug interaction [None]

NARRATIVE: CASE EVENT DATE: 20160414
